FAERS Safety Report 6364152-9 (Version None)
Quarter: 2009Q3

REPORT INFORMATION
  Report Type: 
  Country: None (occurrence: None)
  Receive Date: 20090919
  Receipt Date: 20090827
  Transmission Date: 20100115
  Serious: No
  Sender: FDA-Public Use
  Company Number: US-ABBOTT-07P-163-0425424-00

PATIENT
  Sex: Female

DRUGS (3)
  1. HUMIRA [Suspect]
     Indication: DRUG USE FOR UNKNOWN INDICATION
     Dosage: SYRINGE
     Route: 058
     Dates: start: 20060101
  2. HUMIRA [Suspect]
     Dosage: PEN
     Route: 058
  3. HUMIRA [Suspect]
     Indication: RHEUMATOID ARTHRITIS

REACTIONS (1)
  - INJECTION SITE IRRITATION [None]
